FAERS Safety Report 16983429 (Version 1)
Quarter: 2019Q4

REPORT INFORMATION
  Report Type: Spontaneous
  Country: FR (occurrence: FR)
  Receive Date: 20191101
  Receipt Date: 20191101
  Transmission Date: 20200122
  Serious: Yes (Hospitalization)
  Sender: FDA-Public Use
  Company Number: FR-009507513-1910FRA014374

PATIENT
  Age: 44 Year
  Sex: Female
  Weight: 58.6 kg

DRUGS (1)
  1. TEMODAL [Suspect]
     Active Substance: TEMOZOLOMIDE
     Indication: MULTIPLE ENDOCRINE NEOPLASIA TYPE 1
     Route: 048
     Dates: start: 20190515, end: 20190528

REACTIONS (5)
  - Product prescribing error [Recovered/Resolved]
  - Gingival bleeding [Recovered/Resolved]
  - Febrile bone marrow aplasia [Recovered/Resolved]
  - Purpura [Recovered/Resolved]
  - Incorrect product administration duration [Recovered/Resolved]

NARRATIVE: CASE EVENT DATE: 20190515
